FAERS Safety Report 5485566-5 (Version None)
Quarter: 2007Q4

REPORT INFORMATION
  Report Type: 
  Country: None (occurrence: None)
  Receive Date: 20071011
  Receipt Date: 20071011
  Transmission Date: 20080405
  Serious: Yes (Hospitalization)
  Sender: FDA-Public Use
  Company Number: None

PATIENT
  Age: 70 Year
  Sex: Male

DRUGS (1)
  1. RISPERIDONE [Suspect]
     Indication: DEMENTIA
     Dosage: 1.5MG EVERY DAY PO
     Route: 048
     Dates: start: 20051229, end: 20070912

REACTIONS (3)
  - FALL [None]
  - MENTAL STATUS CHANGES [None]
  - PARKINSONISM [None]
